FAERS Safety Report 4430190-6 (Version None)
Quarter: 2004Q3

REPORT INFORMATION
  Report Type: 
  Country: None (occurrence: None)
  Receive Date: 20040819
  Receipt Date: 20040819
  Transmission Date: 20050211
  Serious: Yes (Life-Threatening)
  Sender: FDA-Public Use
  Company Number: None

PATIENT
  Age: 55 Year
  Sex: Male
  Weight: 85 kg

DRUGS (7)
  1. EPTIFIBATIDE [Suspect]
     Indication: MYOCARDIAL INFARCTION
     Dosage: 750MG/ML  14ML/HR
     Dates: start: 20040620, end: 20040621
  2. LOVENOX [Suspect]
     Indication: MYOCARDIAL INFARCTION
     Dosage: 80 MG BID
     Dates: start: 20040620, end: 20040621
  3. DOBUTAMINE [Concomitant]
  4. LASIX [Concomitant]
  5. LISINOPRIL [Concomitant]
  6. NITROGLYCERIN [Concomitant]
  7. SIMVASTATIN [Concomitant]

REACTIONS (1)
  - THROMBOCYTOPENIA [None]
